FAERS Safety Report 8354967-X (Version None)
Quarter: 2012Q2

REPORT INFORMATION
  Report Type: 
  Country: None (occurrence: None)
  Receive Date: 20120511
  Receipt Date: 20120503
  Transmission Date: 20120825
  Serious: Yes (Other)
  Sender: FDA-Public Use
  Company Number: US-BAUSCH-2012BL002853

PATIENT
  Age: 48 Year
  Sex: Female

DRUGS (7)
  1. BESIVANCE [Suspect]
     Indication: OFF LABEL USE
     Route: 047
     Dates: start: 20120226, end: 20120309
  2. BESIVANCE [Suspect]
  3. GENTEAL SEVERE LUBRICANT EYE GEL [Concomitant]
     Dates: start: 20120226
  4. ACUVAIL [Concomitant]
     Dates: start: 20120226
  5. BESIVANCE [Suspect]
  6. BESIVANCE [Suspect]
     Indication: PROPHYLAXIS
     Route: 047
     Dates: start: 20120226, end: 20120309
  7. ASCORBIC ACID [Concomitant]
     Dates: start: 20120226, end: 20120301

REACTIONS (3)
  - CORNEAL OPACITY [None]
  - IMPAIRED HEALING [None]
  - VISUAL ACUITY REDUCED [None]
